FAERS Safety Report 20581463 (Version 1)
Quarter: 2022Q1

REPORT INFORMATION
  Report Type: Spontaneous
  Country: US (occurrence: US)
  Receive Date: 20220311
  Receipt Date: 20220311
  Transmission Date: 20220423
  Serious: No
  Sender: FDA-Public Use
  Company Number: US-CIPLA LTD.-2021US02759

PATIENT

DRUGS (7)
  1. SERTRALINE [Suspect]
     Active Substance: SERTRALINE HYDROCHLORIDE
     Indication: Depression
     Dosage: 100 MILLIGRAM, QD (ONE TIME A DAY)
     Route: 065
     Dates: start: 2020
  2. SERTRALINE [Suspect]
     Active Substance: SERTRALINE HYDROCHLORIDE
     Dosage: 50 MG FOR 3 DAYS
     Route: 065
     Dates: start: 20210222, end: 202102
  3. SERTRALINE [Suspect]
     Active Substance: SERTRALINE HYDROCHLORIDE
     Dosage: WEANED BY 50 MG, 50 MG AND THEN 50 MG, UNK
     Route: 065
     Dates: start: 202102, end: 20210224
  4. TOPIRAMATE [Suspect]
     Active Substance: TOPIRAMATE
     Indication: Product used for unknown indication
     Dosage: 25 MILLIGRAM, BID
     Route: 065
  5. TOPIRAMATE [Suspect]
     Active Substance: TOPIRAMATE
     Dosage: 50 MILLIGRAM, BID
     Route: 065
  6. NORCO [Concomitant]
     Active Substance: ACETAMINOPHEN\HYDROCODONE BITARTRATE
     Indication: Pain
     Dosage: 1 DOSAGE FORM, PRN (ONE TO TWO TIMES A DAY)
     Route: 065
  7. NABUMETONE [Concomitant]
     Active Substance: NABUMETONE
     Indication: Pain
     Dosage: 500 MILLIGRAM, BID
     Route: 065

REACTIONS (11)
  - Illness [Unknown]
  - Feeling abnormal [Unknown]
  - Inappropriate affect [Unknown]
  - Loss of libido [Recovering/Resolving]
  - Coordination abnormal [Unknown]
  - Malaise [Unknown]
  - Drug withdrawal syndrome [Unknown]
  - Wrong technique in product usage process [Unknown]
  - Paraesthesia [Not Recovered/Not Resolved]
  - Dizziness [Unknown]
  - Nausea [Unknown]

NARRATIVE: CASE EVENT DATE: 20210101
